FAERS Safety Report 6607604-6 (Version None)
Quarter: 2010Q1

REPORT INFORMATION
  Report Type: 
  Country: None (occurrence: None)
  Receive Date: 20100301
  Receipt Date: 20100218
  Transmission Date: 20100710
  Serious: Yes (Other)
  Sender: FDA-Public Use
  Company Number: JP-ASTRAZENECA-2010SE08252

PATIENT
  Age: 23 Year
  Sex: Male

DRUGS (6)
  1. SEROQUEL [Suspect]
     Route: 048
  2. DOGMATYL [Suspect]
  3. TOLEDOMIN [Concomitant]
  4. GASMOTIN [Concomitant]
  5. BROMAZEPAM [Concomitant]
  6. SEPAZON [Concomitant]

REACTIONS (3)
  - INTENTIONAL OVERDOSE [None]
  - POISONING [None]
  - SUICIDE ATTEMPT [None]
